FAERS Safety Report 21374101 (Version 4)
Quarter: 2022Q4

REPORT INFORMATION
  Report Type: Report from Study
  Country: GR (occurrence: GR)
  Receive Date: 20220926
  Receipt Date: 20221126
  Transmission Date: 20230113
  Serious: Yes (Death, Hospitalization)
  Sender: FDA-Public Use
  Company Number: GR-ABBVIE-4128966

PATIENT
  Sex: Female
  Weight: 65 kg

DRUGS (2)
  1. CARBIDOPA\LEVODOPA [Suspect]
     Active Substance: CARBIDOPA\LEVODOPA
     Indication: Parkinson^s disease
     Dosage: MORNING DOSE: 15 ML; CONTINUOUS RATE: 4.2 ML/H; EXTRA DOSE: 2.2 ML
     Route: 050
     Dates: start: 20191219
  2. CARBIDOPA\LEVODOPA [Suspect]
     Active Substance: CARBIDOPA\LEVODOPA
     Dosage: MORNING DOSE: 15 ML; CONTINUOUS RATE: 4.2 ML/H; EXTRA DOSE: 2.2 ML
     Route: 050

REACTIONS (9)
  - COVID-19 [Fatal]
  - Communication disorder [Not Recovered/Not Resolved]
  - Mobility decreased [Not Recovered/Not Resolved]
  - Enteral nutrition [Not Recovered/Not Resolved]
  - General physical health deterioration [Fatal]
  - Stoma site discharge [Not Recovered/Not Resolved]
  - Infection [Not Recovered/Not Resolved]
  - Anaemia [Not Recovered/Not Resolved]
  - Haematocrit decreased [Not Recovered/Not Resolved]
